FAERS Safety Report 4593600-X (Version None)
Quarter: 2005Q1

REPORT INFORMATION
  Report Type: 
  Country: None (occurrence: None)
  Receive Date: 20050224
  Receipt Date: 20040927
  Transmission Date: 20050727
  Serious: No
  Sender: FDA-Public Use
  Company Number: US-BRISTOL-MYERS SQUIBB COMPANY-12713483

PATIENT
  Age: 28 Year
  Sex: Female

DRUGS (2)
  1. EXCEDRIN (MIGRAINE) [Suspect]
     Route: 048
     Dates: start: 20040901, end: 20040901
  2. MIDOL [Suspect]
     Route: 048
     Dates: start: 20040901, end: 20040901

REACTIONS (3)
  - DRUG SCREEN FALSE POSITIVE [None]
  - NORMAL NEWBORN [None]
  - PREGNANCY [None]
